FAERS Safety Report 5090883-7 (Version None)
Quarter: 2006Q3

REPORT INFORMATION
  Report Type: 
  Country: None (occurrence: None)
  Receive Date: 20060823
  Receipt Date: 20060807
  Transmission Date: 20061208
  Serious: No
  Sender: FDA-Public Use
  Company Number: WAES 0605USA03854

PATIENT
  Age: 46 Year
  Sex: Female

DRUGS (17)
  1. CANCIDAS [Suspect]
     Indication: BRONCHOPULMONARY ASPERGILLOSIS
     Dosage: 50 MG/DAILY IV
     Route: 042
     Dates: start: 20060511, end: 20060516
  2. CYTARABINE [Suspect]
     Indication: DRUG USE FOR UNKNOWN INDICATION
     Dates: start: 20060427, end: 20060503
  3. PIPERACILLIN SODIUM AND TAZOBACTAM SODIUM [Suspect]
     Dates: start: 20060502, end: 20060518
  4. AMIKACIN [Suspect]
     Dates: start: 20060502, end: 20060518
  5. ACETAMINOPHEN [Suspect]
     Dosage: 1 GM/1X IV; SEE IMAGE
     Route: 042
     Dates: start: 20060427, end: 20060427
  6. ACETAMINOPHEN [Suspect]
     Dosage: 1 GM/1X IV; SEE IMAGE
     Route: 042
     Dates: start: 20060508, end: 20060508
  7. ACETAMINOPHEN [Suspect]
     Dosage: 1 GM/1X IV; SEE IMAGE
     Route: 042
     Dates: start: 20060510, end: 20060510
  8. ACETAMINOPHEN [Suspect]
     Dosage: 1 GM/1X IV; SEE IMAGE
     Route: 042
     Dates: start: 20060511, end: 20060511
  9. ACETAMINOPHEN [Suspect]
     Dosage: 1 GM/1X IV; SEE IMAGE
     Route: 042
     Dates: start: 20060511, end: 20060511
  10. ACETAMINOPHEN [Suspect]
     Dosage: 1 GM/1X IV; SEE IMAGE
     Route: 042
     Dates: start: 20060512, end: 20060512
  11. ACETAMINOPHEN [Suspect]
     Dosage: 1 GM/1X IV; SEE IMAGE
     Route: 042
     Dates: start: 20060514, end: 20060514
  12. ACETAMINOPHEN [Suspect]
     Dosage: 1 GM/1X IV; SEE IMAGE
     Route: 042
     Dates: start: 20060515, end: 20060515
  13. ACETAMINOPHEN [Suspect]
     Dosage: 1 GM/1X IV; SEE IMAGE
     Route: 042
     Dates: start: 20060516, end: 20060516
  14. ACETAMINOPHEN [Suspect]
     Dosage: 500 MG/1X PO; SEE IMAGE
     Route: 048
     Dates: start: 20060430, end: 20060430
  15. ACETAMINOPHEN [Suspect]
     Dosage: 500 MG/1X PO; SEE IMAGE
     Route: 048
     Dates: start: 20060501, end: 20060501
  16. ACETAMINOPHEN [Suspect]
     Dosage: 500 MG/1X PO; SEE IMAGE
     Route: 048
     Dates: start: 20060502, end: 20060502
  17. ACETAMINOPHEN [Suspect]
     Dosage: 500 MG/1X PO; SEE IMAGE
     Route: 048
     Dates: start: 20060503, end: 20060503

REACTIONS (3)
  - HEPATIC FAILURE [None]
  - HEPATIC NECROSIS [None]
  - SEPTIC SHOCK [None]
